FAERS Safety Report 5209420-9 (Version None)
Quarter: 2007Q1

REPORT INFORMATION
  Report Type: 
  Country: None (occurrence: None)
  Receive Date: 20070116
  Receipt Date: 20070103
  Transmission Date: 20070707
  Serious: Yes (Hospitalization)
  Sender: FDA-Public Use
  Company Number: US-ELI_LILLY_AND_COMPANY-US200611004185

PATIENT
  Age: 69 Year
  Sex: Female
  Weight: 61.678 kg

DRUGS (4)
  1. FORTEO [Suspect]
     Indication: OSTEOPOROSIS
     Dosage: 20 UG, DAILY (1/D)
     Dates: start: 20061103, end: 20061104
  2. FOSAMAX                                 /ITA/ [Concomitant]
  3. STELAZINE [Concomitant]
  4. NEURONTIN [Concomitant]

REACTIONS (2)
  - DIVERTICULITIS [None]
  - PANCREATITIS ACUTE [None]
